FAERS Safety Report 6345132-6 (Version None)
Quarter: 2009Q3

REPORT INFORMATION
  Report Type: 
  Country: None (occurrence: None)
  Receive Date: 20090821
  Receipt Date: 20090623
  Transmission Date: 20100115
  Serious: No
  Sender: FDA-Public Use
  Company Number: 8048294

PATIENT
  Age: 58 Year
  Sex: Male
  Weight: 73.6 kg

DRUGS (4)
  1. CIMZIA [Suspect]
     Indication: CROHN'S DISEASE
     Dosage: 400 MG 1/2W SC
     Route: 058
     Dates: start: 20090609
  2. FOLIC ACID [Concomitant]
  3. ORACEA [Concomitant]
  4. NEXIUM [Concomitant]

REACTIONS (1)
  - MUSCLE SPASMS [None]
